FAERS Safety Report 12719890 (Version 1)
Quarter: 2016Q3

REPORT INFORMATION
  Report Type: Report from Study
  Country: CA (occurrence: CA)
  Receive Date: 20160907
  Receipt Date: 20160907
  Transmission Date: 20161109
  Serious: Yes (Other)
  Sender: FDA-Public Use
  Company Number: CA-AMGEN-CANSL2016118465

PATIENT
  Sex: Female

DRUGS (1)
  1. ENBREL [Suspect]
     Active Substance: ETANERCEPT
     Indication: RHEUMATOID ARTHRITIS
     Dosage: 50 MG/1.0 ML, UNK
     Route: 065
     Dates: start: 20160107

REACTIONS (6)
  - Sensitivity to weather change [Unknown]
  - Migraine [Unknown]
  - Feeling abnormal [Unknown]
  - Knee arthroplasty [Unknown]
  - Pain [Unknown]
  - Arthropathy [Unknown]

NARRATIVE: CASE EVENT DATE: 2016
